FAERS Safety Report 9621272 (Version 2)
Quarter: 2013Q4

REPORT INFORMATION
  Report Type: Spontaneous
  Country: PT (occurrence: PT)
  Receive Date: 20131015
  Receipt Date: 20131107
  Transmission Date: 20140711
  Serious: Yes (Other)
  Sender: FDA-Public Use
  Company Number: PT-JNJFOC-20131006032

PATIENT
  Age: 65 Year
  Sex: Male

DRUGS (2)
  1. DAKTARIN [Suspect]
     Route: 048
  2. DAKTARIN [Suspect]
     Indication: APHTHOUS STOMATITIS
     Route: 048
     Dates: start: 20131003, end: 20131004

REACTIONS (4)
  - Tongue disorder [Recovered/Resolved]
  - Diarrhoea [Recovered/Resolved]
  - Abdominal pain upper [Recovered/Resolved]
  - Off label use [Unknown]
